FAERS Safety Report 13877877 (Version 1)
Quarter: 2017Q3

REPORT INFORMATION
  Report Type: Spontaneous
  Country: AU (occurrence: AU)
  Receive Date: 20170817
  Receipt Date: 20170817
  Transmission Date: 20171127
  Serious: Yes (Other)
  Sender: FDA-Public Use
  Company Number: PHHY2017AU120452

PATIENT
  Age: 40 Year

DRUGS (6)
  1. PHOLCODINE [Suspect]
     Active Substance: PHOLCODINE
     Indication: COUGH
  2. MORPHINE [Concomitant]
     Active Substance: MORPHINE
     Indication: PRODUCT USED FOR UNKNOWN INDICATION
     Route: 065
  3. SUXAMETHONIUM [Concomitant]
     Active Substance: SUCCINYLCHOLINE
     Indication: PRODUCT USED FOR UNKNOWN INDICATION
     Route: 065
  4. ACETYLSALICYLIC ACID [Suspect]
     Active Substance: ASPIRIN
     Indication: COUGH
  5. ACETYLSALICYLIC ACID [Suspect]
     Active Substance: ASPIRIN
     Indication: OROPHARYNGEAL PAIN
     Route: 048
  6. PHOLCODINE [Suspect]
     Active Substance: PHOLCODINE
     Indication: OROPHARYNGEAL PAIN
     Route: 065

REACTIONS (5)
  - Face oedema [Unknown]
  - Syncope [Unknown]
  - Urticaria [Unknown]
  - Throat tightness [Unknown]
  - Pruritus [Unknown]
